FAERS Safety Report 10861221 (Version 1)
Quarter: 2015Q1

REPORT INFORMATION
  Report Type: Spontaneous
  Country: IT (occurrence: IT)
  Receive Date: 20150224
  Receipt Date: 20150224
  Transmission Date: 20150721
  Serious: Yes (Hospitalization)
  Sender: FDA-Public Use
  Company Number: IT-SA-2015SA020477

PATIENT
  Age: 37 Year
  Sex: Male

DRUGS (3)
  1. HUMALOG [Suspect]
     Active Substance: INSULIN LISPRO
     Indication: DIABETES MELLITUS
     Route: 058
     Dates: start: 20140101, end: 20141218
  2. LANTUS [Suspect]
     Active Substance: INSULIN GLARGINE
     Indication: DIABETES MELLITUS
     Route: 058
     Dates: start: 20140101, end: 20141218
  3. NORAPRIL [Concomitant]
     Route: 048

REACTIONS (5)
  - Head injury [Unknown]
  - Hypoglycaemia [Unknown]
  - Fall [Unknown]
  - Hypoglycaemic coma [Unknown]
  - Injury [Unknown]

NARRATIVE: CASE EVENT DATE: 20141218
